FAERS Safety Report 9357773 (Version 1)
Quarter: 2013Q2

REPORT INFORMATION
  Report Type: Spontaneous
  Country: CA (occurrence: CA)
  Receive Date: 20130620
  Receipt Date: 20130620
  Transmission Date: 20140414
  Serious: Yes (Hospitalization)
  Sender: FDA-Public Use
  Company Number: CA-PFIZER INC-2013179115

PATIENT
  Age: 34 Year
  Sex: Female

DRUGS (2)
  1. SOMAVERT [Suspect]
     Dosage: 20 MG, UNK
  2. SANDOSTATIN [Suspect]

REACTIONS (2)
  - Vomiting [Recovered/Resolved]
  - Diarrhoea [Recovered/Resolved]
